FAERS Safety Report 6252651-X (Version None)
Quarter: 2009Q2

REPORT INFORMATION
  Report Type: 
  Country: None (occurrence: None)
  Receive Date: 20090629
  Receipt Date: 20090629
  Transmission Date: 20091009
  Serious: Yes (Hospitalization)
  Sender: FDA-Public Use
  Company Number: None

PATIENT
  Sex: Female
  Weight: 22.8 kg

DRUGS (4)
  1. MERCAPTOPURINE [Suspect]
     Dosage: 2550 MG
  2. METHOTREXATE [Suspect]
     Dosage: 111.5 MG
  3. PREDNISONE [Suspect]
     Dosage: 350 MG
  4. VINCRISTINE SULFATE [Suspect]
     Dosage: 2.6 MG

REACTIONS (9)
  - COMPLEMENT FACTOR C3 DECREASED [None]
  - FATIGUE [None]
  - HAEMOLYTIC URAEMIC SYNDROME [None]
  - JAUNDICE [None]
  - POLYCHROMASIA [None]
  - RED BLOOD CELL SCHISTOCYTES PRESENT [None]
  - THROMBOTIC THROMBOCYTOPENIC PURPURA [None]
  - VOMITING [None]
  - WHITE BLOOD CELL COUNT DECREASED [None]
